FAERS Safety Report 9382098 (Version 1)
Quarter: 2013Q3

REPORT INFORMATION
  Report Type: Spontaneous
  Country: US (occurrence: US)
  Receive Date: 20130703
  Receipt Date: 20130703
  Transmission Date: 20140515
  Serious: Yes (Hospitalization, Other)
  Sender: FDA-Public Use
  Company Number: US-AMGEN-USASP2013044975

PATIENT
  Age: 76 Year
  Sex: Male

DRUGS (5)
  1. ROMIPLOSTIM [Suspect]
     Indication: ANAEMIA
     Dosage: UNK UNK, Q4WK
     Dates: end: 20080912
  2. ERYTHROPOETIN [Concomitant]
     Indication: ANAEMIA
     Dosage: 40000 UNIT, QWK
     Route: 058
     Dates: start: 20050415
  3. BLOOD TRANSFUSION, AUXILIARY PRODUCTS [Concomitant]
     Indication: THROMBOCYTOPENIA
     Dosage: UNK UNK, QMO
  4. AZACITIDINE [Concomitant]
     Dosage: 75 MG/ML, FOR SEVEN DAYS ON 28 DAY CYCLE
     Dates: start: 20070201
  5. CLOFARABINE [Concomitant]
     Dosage: 1 MG, UNK, 5 DAYS ON 28 DAYS CYCLE
     Route: 048

REACTIONS (8)
  - Blast cells present [Unknown]
  - Febrile neutropenia [Unknown]
  - Haemoglobin decreased [Not Recovered/Not Resolved]
  - Platelet count decreased [Not Recovered/Not Resolved]
  - Neutropenia [Not Recovered/Not Resolved]
  - Bacterial infection [Recovered/Resolved]
  - Transaminases increased [Unknown]
  - Rash [Unknown]
